FAERS Safety Report 23367793 (Version 1)
Quarter: 2024Q1

REPORT INFORMATION
  Report Type: Spontaneous
  Country: JP (occurrence: JP)
  Receive Date: 20240104
  Receipt Date: 20240104
  Transmission Date: 20240409
  Serious: Yes (Hospitalization)
  Sender: FDA-Public Use
  Company Number: JP-Vifor (International) Inc.-VIT-2023-09951

PATIENT
  Age: 80 Year
  Sex: Female
  Weight: 65.3 kg

DRUGS (15)
  1. TAVNEOS [Suspect]
     Active Substance: AVACOPAN
     Indication: Microscopic polyangiitis
     Dosage: 30 MILLIGRAM, Q12H
     Route: 048
     Dates: start: 20230613, end: 20230815
  2. PREDNISOLONE [Concomitant]
     Active Substance: PREDNISOLONE
     Indication: Microscopic polyangiitis
     Dosage: 7.5 MILLIGRAM, QD
     Dates: start: 20230808
  3. LANSOPRAZOLE [Concomitant]
     Active Substance: LANSOPRAZOLE
     Indication: Prophylaxis
     Dosage: PERORAL MEDICINE
     Dates: start: 20230520
  4. OLMESARTAN MEDOXOMIL [Concomitant]
     Active Substance: OLMESARTAN MEDOXOMIL
     Indication: Hypertension
     Dosage: PERORAL MEDICINE
     Dates: start: 20230524, end: 20230811
  5. ALFACALCIDOL [Concomitant]
     Active Substance: ALFACALCIDOL
     Indication: Hypocalcaemia
     Dosage: PERORAL MEDICINE
     Route: 048
     Dates: start: 20230527
  6. TRICHLORMETHIAZIDE [Concomitant]
     Active Substance: TRICHLORMETHIAZIDE
     Indication: Oedema
     Dosage: 1 MILLIGRAM, QD
     Route: 048
     Dates: start: 20230711, end: 20230811
  7. FUROSEMIDE [Concomitant]
     Active Substance: FUROSEMIDE
     Indication: Oedema
     Dosage: 40 MILLIGRAM, Q12H
     Dates: start: 20230613
  8. SULFAMETHOXAZOLE\TRIMETHOPRIM [Concomitant]
     Active Substance: SULFAMETHOXAZOLE\TRIMETHOPRIM
     Indication: Prophylaxis
     Dosage: 0.5 DOSAGE FORM, QD
     Route: 048
     Dates: start: 20230520
  9. NIFEDIPINE [Concomitant]
     Active Substance: NIFEDIPINE
     Indication: Hypertension
     Dosage: PERORAL MEDICINE
     Route: 048
     Dates: start: 20230515, end: 20230818
  10. ENARODUSTAT [Concomitant]
     Active Substance: ENARODUSTAT
     Indication: Nephrogenic anaemia
     Dosage: 2 MILLIGRAM, QD
     Route: 048
     Dates: start: 20230711
  11. SUVOREXANT [Concomitant]
     Active Substance: SUVOREXANT
     Indication: Insomnia
     Dosage: 15 MILLIGRAM, QD
     Route: 048
  12. SODIUM CHLORIDE [Concomitant]
     Active Substance: SODIUM CHLORIDE
     Dosage: UNK
     Dates: start: 20230811, end: 20230811
  13. YD SOLITA T NO.1 [Concomitant]
     Dosage: UNK
     Route: 042
     Dates: start: 20230812, end: 20230812
  14. YD SOLITA T NO.1 [Concomitant]
     Dosage: UNK
     Route: 042
     Dates: start: 20230813, end: 20230815
  15. YD SOLITA T NO.1 [Concomitant]
     Dosage: UNK
     Route: 042
     Dates: start: 20230816, end: 20230821

REACTIONS (6)
  - Jaundice [Recovered/Resolved]
  - Decreased appetite [Unknown]
  - Hypotension [Unknown]
  - Dehydration [Unknown]
  - Loss of consciousness [Unknown]
  - Hepatic function abnormal [Recovered/Resolved]

NARRATIVE: CASE EVENT DATE: 20230801
